FAERS Safety Report 24777671 (Version 4)
Quarter: 2025Q2

REPORT INFORMATION
  Report Type: Spontaneous
  Country: US (occurrence: US)
  Receive Date: 20241226
  Receipt Date: 20250408
  Transmission Date: 20250716
  Serious: Yes (Other)
  Sender: BAYER
  Company Number: US-BAYER-2024A181581

PATIENT
  Sex: Male

DRUGS (3)
  1. JIVI [Suspect]
     Active Substance: DAMOCTOCOG ALFA PEGOL
     Indication: Factor VIII deficiency
     Dosage: JIVI 1000 UNITS/ INFUSE 1000 UNITS SLOW IV PUSH BIW PRN FOR BREAKTHROUGH BLEEDING
     Route: 042
     Dates: start: 202002
  2. JIVI [Suspect]
     Active Substance: DAMOCTOCOG ALFA PEGOL
     Indication: Haemorrhage
     Dosage: JIVI 2000 UNITS/INFUSE 2000 UNITS SLOW IV PUSH BIW PRN FOR BREAKTHROUGH BLEEDING
     Route: 042
     Dates: start: 202002
  3. JIVI [Suspect]
     Active Substance: DAMOCTOCOG ALFA PEGOL
     Indication: Factor VIII deficiency

REACTIONS (5)
  - Haemarthrosis [None]
  - Haemarthrosis [None]
  - Haemorrhage [None]
  - Haemorrhage [None]
  - Haemarthrosis [None]
